FAERS Safety Report 7822928-2 (Version None)
Quarter: 2011Q4

REPORT INFORMATION
  Report Type: 
  Country: None (occurrence: None)
  Receive Date: 20111018
  Receipt Date: 20101028
  Transmission Date: 20120403
  Serious: No
  Sender: FDA-Public Use
  Company Number: US-ASTRAZENECA-2010SE51877

PATIENT
  Sex: Male

DRUGS (5)
  1. ALBUTEROL [Concomitant]
  2. TIZANIDINE HCL [Concomitant]
  3. SINGULAIR [Concomitant]
  4. SOMA [Concomitant]
  5. SYMBICORT [Suspect]
     Route: 055

REACTIONS (2)
  - DRUG HYPERSENSITIVITY [None]
  - MATERNAL EXPOSURE DURING PREGNANCY [None]
